FAERS Safety Report 9684657 (Version 1)
Quarter: 2013Q4

REPORT INFORMATION
  Report Type: Spontaneous
  Country: BR (occurrence: BR)
  Receive Date: 20131112
  Receipt Date: 20131112
  Transmission Date: 20140711
  Serious: Yes (Other)
  Sender: FDA-Public Use
  Company Number: BR-ELI_LILLY_AND_COMPANY-BR201311000260

PATIENT
  Age: 57 Year
  Sex: Female

DRUGS (4)
  1. HUMULIN N [Suspect]
     Indication: TYPE 2 DIABETES MELLITUS
     Dosage: 30 IU, EACH MORNING
     Route: 058
     Dates: start: 2003
  2. HUMULIN N [Suspect]
     Dosage: 20 IU, EACH EVENING
     Route: 058
     Dates: start: 2003
  3. LOSARTAN [Concomitant]
     Indication: HYPERTENSION
     Dosage: UNK, EACH MORNING
     Route: 065
  4. LOSARTAN [Concomitant]
     Dosage: UNK, EACH EVENING
     Route: 065

REACTIONS (6)
  - Retinal haemorrhage [Unknown]
  - Cataract [Recovered/Resolved]
  - Cellulitis [Recovered/Resolved with Sequelae]
  - Vision blurred [Unknown]
  - Arterial disorder [Recovered/Resolved]
  - Weight increased [Unknown]
